FAERS Safety Report 5598085-2 (Version None)
Quarter: 2008Q1

REPORT INFORMATION
  Report Type: 
  Country: None (occurrence: None)
  Receive Date: 20080122
  Receipt Date: 20080114
  Transmission Date: 20080703
  Serious: Yes (Life-Threatening, Hospitalization)
  Sender: FDA-Public Use
  Company Number: DE-NOVOPROD-266766

PATIENT

DRUGS (10)
  1. ACTRAPID [Suspect]
     Indication: INSULIN-REQUIRING TYPE 2 DIABETES MELLITUS
     Dosage: ACCORDING TO BLOOD GLUCOSE LEVEL
     Route: 058
     Dates: start: 20020726, end: 20070831
  2. ACTRAPHANE 30 PENFILL [Suspect]
     Indication: INSULIN-REQUIRING TYPE 2 DIABETES MELLITUS
     Dosage: 44 IU, QD
     Route: 058
     Dates: start: 20020521, end: 20070831
  3. ASPIRIN [Concomitant]
     Indication: DRUG USE FOR UNKNOWN INDICATION
     Dosage: 1 TAB, QD
     Route: 048
  4. MONO-CORAX [Concomitant]
     Indication: DRUG USE FOR UNKNOWN INDICATION
     Dosage: 1 TAB, QD
     Route: 048
  5. RAMIPRIL [Concomitant]
     Indication: DRUG USE FOR UNKNOWN INDICATION
     Dosage: 2 TAB, QD
     Route: 048
  6. RAMIPRIL [Concomitant]
  7. NITRE [Concomitant]
     Indication: DRUG USE FOR UNKNOWN INDICATION
     Dosage: 2 TAB, QD
     Route: 048
  8. METO                               /00047901/ [Concomitant]
     Indication: DRUG USE FOR UNKNOWN INDICATION
     Dosage: 1 TAB, QD
     Route: 048
  9. TORSEMIDE [Concomitant]
     Indication: DRUG USE FOR UNKNOWN INDICATION
     Dosage: 1 TAB, QD
     Route: 048
  10. L-THYROXIN [Concomitant]
     Indication: DRUG USE FOR UNKNOWN INDICATION
     Dosage: UNK, QD
     Route: 048

REACTIONS (2)
  - HYPERTENSIVE CRISIS [None]
  - HYPOGLYCAEMIA [None]
